FAERS Safety Report 7484072-6 (Version None)
Quarter: 2011Q2

REPORT INFORMATION
  Report Type: 
  Country: None (occurrence: None)
  Receive Date: 20110517
  Receipt Date: 20110502
  Transmission Date: 20111010
  Serious: Yes (Life-Threatening, Hospitalization)
  Sender: FDA-Public Use
  Company Number: US-BAYER-201027720NA

PATIENT
  Age: 17 Year
  Sex: Female

DRUGS (10)
  1. YAZ [Suspect]
     Indication: CONTRACEPTION
     Dosage: UNK UNK, QD
     Route: 048
     Dates: start: 20070101, end: 20080101
  2. NAPROXEN [Concomitant]
     Dosage: 550 MG, UNK
     Route: 048
  3. YAZ [Suspect]
     Indication: POLYCYSTIC OVARIES
  4. PROZAC [Concomitant]
     Dosage: 20 MG, UNK
     Route: 048
  5. ENEMAS [Concomitant]
     Dosage: UNK
     Dates: start: 20070801
  6. MIRALAX [Concomitant]
     Dosage: UNK
     Dates: start: 20070801
  7. TORADOL [Concomitant]
     Dosage: 10 MG, UNK
     Route: 048
     Dates: start: 20070815
  8. TRILEPTAL [Concomitant]
     Dosage: 150 MG, UNK
     Route: 048
  9. TRILEPTAL [Concomitant]
     Dosage: 300 MG, UNK
     Route: 048
  10. LOESTRIN 1.5/30 [Concomitant]

REACTIONS (4)
  - RENAL FAILURE [None]
  - RENAL TUBULAR NECROSIS [None]
  - DEHYDRATION [None]
  - UNEVALUABLE EVENT [None]
